FAERS Safety Report 12561290 (Version 2)
Quarter: 2016Q3

REPORT INFORMATION
  Report Type: Report from Study
  Country: IE (occurrence: IE)
  Receive Date: 20160715
  Receipt Date: 20160721
  Transmission Date: 20161109
  Serious: Yes (Death, Other)
  Sender: FDA-Public Use
  Company Number: IE-AMGEN-IRLSL2016091804

PATIENT
  Age: 90 Year
  Sex: Male

DRUGS (3)
  1. CALCIUM ACETATE. [Concomitant]
     Active Substance: CALCIUM ACETATE
     Dosage: 1000 MG, BID
     Route: 050
  2. ARANESP [Suspect]
     Active Substance: DARBEPOETIN ALFA
     Indication: CHRONIC KIDNEY DISEASE
     Dosage: 30 MUG, Q3WK
     Route: 058
     Dates: start: 20160115, end: 201606
  3. COMBODART [Concomitant]
     Active Substance: DUTASTERIDE\TAMSULOSIN
     Dosage: 0.9 MG, QD
     Route: 050

REACTIONS (2)
  - Inappropriate schedule of drug administration [Unknown]
  - Death [Fatal]

NARRATIVE: CASE EVENT DATE: 201606
